FAERS Safety Report 11723132 (Version 3)
Quarter: 2016Q2

REPORT INFORMATION
  Report Type: Report from Study
  Country: JP (occurrence: JP)
  Receive Date: 20151111
  Receipt Date: 20160412
  Transmission Date: 20160815
  Serious: Yes (Life-Threatening, Hospitalization)
  Sender: FDA-Public Use
  Company Number: JP-PFIZER INC-2015368322

PATIENT
  Age: 58 Year
  Sex: Female
  Weight: 37 kg

DRUGS (5)
  1. CRIZOTINIB [Suspect]
     Active Substance: CRIZOTINIB
     Indication: NON-SMALL CELL LUNG CANCER
     Dosage: 200 MG, 2X/DAY
     Route: 048
     Dates: start: 20130123
  2. MEVALOTIN [Concomitant]
     Active Substance: PRAVASTATIN SODIUM
     Dosage: 10 MG, 1X/DAY
     Route: 048
     Dates: start: 20130101
  3. MAGLAX [Concomitant]
     Active Substance: MAGNESIUM OXIDE
     Dosage: AT 500 TO 660 MG, 2X/DAY
     Route: 048
     Dates: start: 20130105, end: 20130313
  4. PURSENNID /00142207/ [Concomitant]
     Active Substance: SENNOSIDES A AND B
     Dosage: AT 12 TO 24 MG, 1X/DAY
     Route: 048
     Dates: start: 20120122, end: 20130313
  5. NOVAMINE [Concomitant]
     Active Substance: ALANINE\ARGININE\ASPARTIC ACID\GLUTAMIC ACID\GLYCINE\HISTIDINE\ISOLEUCINE\LEUCINE\LYSINE ACETATE\METHIONINE\PHENYLALANINE\PROLINE\SERINE\THREONINE\TRYPTOPHAN\TYROSINE\VALINE
     Dosage: 5 MG, 3X/DAY
     Route: 048
     Dates: start: 20130123, end: 20130313

REACTIONS (1)
  - Anaemia [Recovering/Resolving]

NARRATIVE: CASE EVENT DATE: 20130215
